FAERS Safety Report 9321757 (Version 1)
Quarter: 2013Q2

REPORT INFORMATION
  Report Type: Spontaneous
  Country: US (occurrence: None)
  Receive Date: 20130530
  Receipt Date: 20130530
  Transmission Date: 20140414
  Serious: Yes (Other)
  Sender: FDA-Public Use
  Company Number: None

PATIENT
  Age: 35 Year
  Sex: Male

DRUGS (1)
  1. COPAXONE 20MG TEVA NEUROSCIENCE [Suspect]
     Indication: MULTIPLE SCLEROSIS
     Dosage: 12-1-2009 TO PRESENT 5/29/13
     Dates: start: 20091201, end: 20130529

REACTIONS (1)
  - Injection site necrosis [None]
